FAERS Safety Report 8511861-9 (Version None)
Quarter: 2012Q3

REPORT INFORMATION
  Report Type: 
  Country: None (occurrence: None)
  Receive Date: 20120716
  Receipt Date: 20120705
  Transmission Date: 20120928
  Serious: Yes (Hospitalization)
  Sender: FDA-Public Use
  Company Number: SE-SANOFI-AVENTIS-2012SA047733

PATIENT
  Age: 74 Year
  Sex: Female

DRUGS (3)
  1. VENLAFAXINE HYDROCHOLRIDE [Concomitant]
     Route: 065
  2. CLOPIDOGREL [Suspect]
     Route: 065
     Dates: start: 20120201
  3. SIMVASTATIN [Concomitant]
     Route: 065

REACTIONS (2)
  - DIZZINESS [None]
  - NAUSEA [None]
